FAERS Safety Report 8838108 (Version 1)
Quarter: 2012Q4

REPORT INFORMATION
  Report Type: 
  Country: US (occurrence: US)
  Receive Date: 20121012
  Receipt Date: 20121012
  Transmission Date: 20130627
  Serious: Yes (Other)
  Sender: FDA-Public Use
  Company Number: US-ROCHE-1140541

PATIENT
  Sex: Male
  Weight: 63.8 kg

DRUGS (2)
  1. PROTROPIN [Suspect]
     Indication: DWARFISM
     Route: 058
     Dates: start: 19980331
  2. PROTROPIN [Suspect]
     Indication: GROWTH HORMONE DEFICIENCY

REACTIONS (2)
  - Hypertension [Unknown]
  - Hypersensitivity [Not Recovered/Not Resolved]
